FAERS Safety Report 8232291-3 (Version None)
Quarter: 2012Q1

REPORT INFORMATION
  Report Type: 
  Country: None (occurrence: None)
  Receive Date: 20120323
  Receipt Date: 20120322
  Transmission Date: 20120608
  Serious: No
  Sender: FDA-Public Use
  Company Number: US-PFIZER INC-2012075175

PATIENT
  Sex: Male
  Weight: 105.7 kg

DRUGS (3)
  1. TOPROL-XL [Concomitant]
     Indication: MYOCARDIAL INFARCTION
     Dosage: 25 MG, UNK
  2. LESCOL [Concomitant]
     Indication: PROPHYLAXIS
     Dosage: 80 MG, UNK
  3. VIAGRA [Suspect]
     Indication: ERECTILE DYSFUNCTION
     Dosage: 50 MG, AS NEEDED
     Route: 048
     Dates: start: 20060101, end: 20060101

REACTIONS (1)
  - DRUG EFFECT DECREASED [None]
